FAERS Safety Report 4818574-5 (Version None)
Quarter: 2005Q4

REPORT INFORMATION
  Report Type: 
  Country: None (occurrence: None)
  Receive Date: 20051101
  Receipt Date: 20051027
  Transmission Date: 20060501
  Serious: Yes (Other)
  Sender: FDA-Public Use
  Company Number: S05-USA-04089-01

PATIENT
  Age: 84 Year
  Sex: Female
  Weight: 76.2043 kg

DRUGS (4)
  1. NAMENDA [Suspect]
     Indication: DEMENTIA
     Dosage: 10 MG BID PO
     Route: 048
     Dates: start: 20050105, end: 20050803
  2. CELEBREX [Suspect]
     Indication: OSTEOARTHRITIS
     Dosage: 200 MG QD
     Dates: start: 20050326, end: 20050809
  3. RISPERDAL [Suspect]
     Indication: DEMENTIA
     Dosage: 0.25 MG QHS
     Dates: start: 20050326, end: 20050803
  4. RISPERDAL [Suspect]
     Indication: DEPRESSION
     Dosage: 0.25 MG QHS
     Dates: start: 20050326, end: 20050803

REACTIONS (4)
  - ALANINE AMINOTRANSFERASE INCREASED [None]
  - ASPARTATE AMINOTRANSFERASE INCREASED [None]
  - BILIRUBIN CONJUGATED INCREASED [None]
  - BLOOD ALKALINE PHOSPHATASE INCREASED [None]
